FAERS Safety Report 10618713 (Version 4)
Quarter: 2015Q1

REPORT INFORMATION
  Report Type: Spontaneous
  Country: CA (occurrence: None)
  Receive Date: 20141125
  Receipt Date: 20150325
  Transmission Date: 20150720
  Serious: Yes (Hospitalization, Other)
  Sender: FDA-Public Use
  Company Number: 2014-20792

PATIENT

DRUGS (8)
  1. EYLEA [Suspect]
     Active Substance: AFLIBERCEPT
     Indication: PRODUCT USED FOR UNKNOWN INDICATION
     Dosage: TWO INJECTIONS, INTRAOCULAR
     Route: 031
  2. COVERSYL (PERINDOPRIL ERBUMINE) [Concomitant]
     Active Substance: PERINDOPRIL
  3. VIGAMOX (MOXIFLOXACIN HYDROCHLORIDE) [Concomitant]
  4. ILOTYCIN (ERYTHROMYCIN) [Concomitant]
  5. COUMADIN [Concomitant]
     Active Substance: WARFARIN SODIUM
  6. CRESTOR [Concomitant]
     Active Substance: ROSUVASTATIN CALCIUM
  7. POVIDONE IODINE (POVIDONE-IODINE) [Concomitant]
  8. BISOPROLOL [Concomitant]
     Active Substance: BISOPROLOL

REACTIONS (3)
  - Herpes zoster [None]
  - Blindness unilateral [None]
  - Uveitis [None]

NARRATIVE: CASE EVENT DATE: 2014
